FAERS Safety Report 20317909 (Version 9)
Quarter: 2023Q1

REPORT INFORMATION
  Report Type: Spontaneous
  Country: PT (occurrence: PT)
  Receive Date: 20220110
  Receipt Date: 20230227
  Transmission Date: 20230418
  Serious: Yes (Death, Life-Threatening, Hospitalization, Other)
  Sender: FDA-Public Use
  Company Number: PT-MYLANLABS-2021M1079309

PATIENT
  Age: 75 Year
  Sex: Female

DRUGS (2)
  1. ALLOPURINOL [Suspect]
     Active Substance: ALLOPURINOL
     Indication: Hyperuricaemia
     Dosage: 300 MILLIGRAMFOR 23 DAYS
     Route: 065
     Dates: start: 2021
  2. ALLOPURINOL [Suspect]
     Active Substance: ALLOPURINOL
     Dosage: UNK (FOR 23 DAYS)
     Route: 048

REACTIONS (8)
  - Toxic epidermal necrolysis [Fatal]
  - Stevens-Johnson syndrome [Unknown]
  - Hepatic cytolysis [Unknown]
  - Acute kidney injury [Unknown]
  - Leukocytosis [Unknown]
  - Eosinophilia [Unknown]
  - Off label use [Unknown]
  - Product use in unapproved indication [Unknown]
